FAERS Safety Report 5049305-4 (Version None)
Quarter: 2006Q3

REPORT INFORMATION
  Report Type: 
  Country: None (occurrence: None)
  Receive Date: 20060712
  Receipt Date: 20060630
  Transmission Date: 20061208
  Serious: Yes (Other)
  Sender: FDA-Public Use
  Company Number: 2006AP03024

PATIENT
  Age: 56 Year
  Sex: Male

DRUGS (5)
  1. IRESSA [Suspect]
     Indication: NON-SMALL CELL LUNG CANCER
     Route: 048
     Dates: start: 20060620
  2. UNKNOWN DRUG [Concomitant]
     Indication: WHITE BLOOD CELL COUNT INCREASED
  3. UNKNOWN DRUG [Concomitant]
  4. GEMCITABINE [Concomitant]
     Dosage: 4 COURSES
     Dates: start: 20060530, end: 20060601
  5. CHINESE HERBAL MEDICINE [Concomitant]
     Indication: WHITE BLOOD CELL COUNT INCREASED

REACTIONS (2)
  - RED BLOOD CELL COUNT DECREASED [None]
  - WHITE BLOOD CELL COUNT DECREASED [None]
